FAERS Safety Report 25234319 (Version 1)
Quarter: 2025Q2

REPORT INFORMATION
  Report Type: Spontaneous
  Country: US (occurrence: US)
  Receive Date: 20250424
  Receipt Date: 20250424
  Transmission Date: 20250716
  Serious: Yes (Death, Other)
  Sender: Vantive US Healthcare
  Company Number: US-VANTIVE-2025VAN001706

PATIENT
  Age: 80 Year
  Sex: Male

DRUGS (3)
  1. DEXTROSE\LACTIC ACID\MAGNESIUM CL\POTASSIUM CL\SODIUM BICARBONATE\SODI [Suspect]
     Active Substance: DEXTROSE\LACTIC ACID\MAGNESIUM CHLORIDE\POTASSIUM CHLORIDE\SODIUM BICARBONATE\SODIUM CHLORIDE
     Indication: Renal replacement therapy
     Route: 065
     Dates: start: 20250308, end: 20250308
  2. CALCIUM CHLORIDE [Suspect]
     Active Substance: CALCIUM CHLORIDE
     Route: 065
     Dates: start: 20250308
  3. POTASSIUM CHLORIDE [Suspect]
     Active Substance: POTASSIUM CHLORIDE
     Route: 065
     Dates: start: 20250308

REACTIONS (4)
  - Death [Fatal]
  - Product dispensing error [Unknown]
  - Wrong product administered [Unknown]
  - Blood potassium increased [Unknown]

NARRATIVE: CASE EVENT DATE: 20250308
